FAERS Safety Report 5678738-8 (Version None)
Quarter: 2008Q1

REPORT INFORMATION
  Report Type: 
  Country: None (occurrence: None)
  Receive Date: 20080320
  Receipt Date: 20080304
  Transmission Date: 20080703
  Serious: Yes (Hospitalization)
  Sender: FDA-Public Use
  Company Number: 2008EU000467

PATIENT
  Age: 69 Year
  Sex: Male

DRUGS (2)
  1. TACROLIMUS [Suspect]
     Indication: HEART TRANSPLANT
  2. ENALAPRIL MALEATE [Suspect]
     Indication: HEART TRANSPLANT
     Dosage: 20 MG, UID/QD,
     Dates: start: 20061201, end: 20070201

REACTIONS (4)
  - DEHYDRATION [None]
  - DRUG INTERACTION [None]
  - GASTROENTERITIS [None]
  - RENAL FAILURE [None]
